FAERS Safety Report 4635060-6 (Version None)
Quarter: 2005Q2

REPORT INFORMATION
  Report Type: 
  Country: None (occurrence: None)
  Receive Date: 20050414
  Receipt Date: 20050222
  Transmission Date: 20051028
  Serious: Yes (Hospitalization)
  Sender: FDA-Public Use
  Company Number: DE-ROCHE-396443

PATIENT
  Age: 45 Year
  Sex: Male

DRUGS (2)
  1. PEGASYS [Suspect]
     Route: 058
     Dates: start: 20041116, end: 20050215
  2. COPEGUS [Suspect]
     Route: 048
     Dates: start: 20041116, end: 20050215

REACTIONS (4)
  - AGGRESSION [None]
  - HALLUCINATION [None]
  - PSYCHOTIC DISORDER [None]
  - SCHIZOPHRENIA [None]
